FAERS Safety Report 7262491-0 (Version None)
Quarter: 2011Q1

REPORT INFORMATION
  Report Type: 
  Country: None (occurrence: None)
  Receive Date: 20110130
  Receipt Date: 20101209
  Transmission Date: 20110831
  Serious: No
  Sender: FDA-Public Use
  Company Number: US-ABBOTT-10P-163-0690565-00

PATIENT
  Sex: Female

DRUGS (5)
  1. POTASSIUM [Concomitant]
     Indication: PRODUCT USED FOR UNKNOWN INDICATION
  2. METHOTREXATE [Concomitant]
     Indication: RHEUMATOID ARTHRITIS
     Route: 048
  3. HUMIRA [Suspect]
     Indication: RHEUMATOID ARTHRITIS
     Route: 058
     Dates: start: 20101018
  4. LASIX [Concomitant]
     Indication: FLUID RETENTION
     Route: 048
  5. PLAVIX [Concomitant]
     Indication: THROMBOSIS
     Route: 048

REACTIONS (1)
  - UPPER RESPIRATORY TRACT INFECTION [None]
